FAERS Safety Report 6505572-9 (Version None)
Quarter: 2009Q4

REPORT INFORMATION
  Report Type: 
  Country: None (occurrence: None)
  Receive Date: 20091217
  Receipt Date: 20091217
  Transmission Date: 20100525
  Serious: Yes (Disabling)
  Sender: FDA-Public Use
  Company Number: None

PATIENT
  Sex: Male
  Weight: 90.7194 kg

DRUGS (2)
  1. LIPITOR [Suspect]
     Indication: BLOOD CHOLESTEROL DECREASED
     Dosage: 80 MG DAILY
     Dates: start: 20091101, end: 20091118
  2. LIPITOR [Suspect]
     Indication: RENAL DISORDER
     Dosage: 80 MG DAILY
     Dates: start: 20091101, end: 20091118

REACTIONS (2)
  - FALL [None]
  - MUSCLE ATROPHY [None]
